FAERS Safety Report 8449689-0 (Version None)
Quarter: 2012Q2

REPORT INFORMATION
  Report Type: 
  Country: None (occurrence: None)
  Receive Date: 20120620
  Receipt Date: 20120613
  Transmission Date: 20120825
  Serious: Yes (Death, Hospitalization, Other)
  Sender: FDA-Public Use
  Company Number: US-PFIZER INC-2010106617

PATIENT
  Sex: Male

DRUGS (10)
  1. LEVAQUIN [Concomitant]
     Dosage: UNK MG, UNK
  2. SIMVASTATIN [Concomitant]
     Dosage: UNK
  3. DILANTIN [Suspect]
     Dosage: 100 MG, UNK
     Route: 048
     Dates: start: 20090620
  4. DILANTIN [Suspect]
     Dosage: 350 MG, AT BEDTIME
     Route: 048
  5. NORVASC [Concomitant]
     Dosage: UNK
  6. DILANTIN [Suspect]
     Indication: CONVULSION
     Dosage: 50 MG, UNK
     Route: 048
     Dates: start: 20090622
  7. DILANTIN [Suspect]
     Dosage: 50 MG, UNK
     Route: 048
     Dates: start: 20090708
  8. COMBIVENT [Concomitant]
     Dosage: UNK
  9. COUMADIN [Concomitant]
     Dosage: UNK
  10. DILANTIN [Suspect]
     Dosage: 300 MG, UNK
     Route: 048
     Dates: start: 20090624, end: 20090626

REACTIONS (1)
  - STEVENS-JOHNSON SYNDROME [None]
